FAERS Safety Report 23196296 (Version 8)
Quarter: 2024Q4

REPORT INFORMATION
  Report Type: Report from Study
  Country: CO (occurrence: CO)
  Receive Date: 20231117
  Receipt Date: 20241226
  Transmission Date: 20250115
  Serious: Yes (Life-Threatening, Other)
  Sender: NOVARTIS
  Company Number: CO-002147023-NVSC2020CO055411

PATIENT
  Sex: Female
  Weight: 50 kg

DRUGS (15)
  1. KISQALI [Suspect]
     Active Substance: RIBOCICLIB
     Indication: Breast cancer metastatic
     Dosage: 400 MG, QD TABLET (2 TABLETS OF 200 MG)
     Route: 048
  2. KISQALI [Suspect]
     Active Substance: RIBOCICLIB
     Indication: Hormone receptor positive HER2 negative breast cancer
     Dosage: 600 MG, QD
     Route: 048
     Dates: start: 20191119, end: 202411
  3. KISQALI [Suspect]
     Active Substance: RIBOCICLIB
     Dosage: 600 MG (3 TABLETS OF 200 MG)
     Route: 048
     Dates: start: 20231110
  4. KISQALI [Suspect]
     Active Substance: RIBOCICLIB
     Dosage: 600 MG (3 TABLETS OF 200 MG, (5 YEARS AGO (THE EXACT DATE WAS NOT REPORTED))
     Route: 048
  5. KISQALI [Suspect]
     Active Substance: RIBOCICLIB
     Dosage: 600 MG, 21D (3 TABLETS FOR 21 DAYS AND RESTING 8 DAYS OF 200 MG)
     Route: 048
  6. KISQALI [Suspect]
     Active Substance: RIBOCICLIB
     Dosage: 450 MG, 21D (3 DOSAGE FORM OF 150 MG (21 DAYS RESTS 7, STARTED 3 MONTHS AGO)
     Route: 048
     Dates: start: 202403, end: 20240329
  7. KISQALI [Suspect]
     Active Substance: RIBOCICLIB
     Dosage: 600 MG, 21D, DAILY FOR 21 DAYS
     Route: 048
     Dates: start: 20241001
  8. KISQALI [Suspect]
     Active Substance: RIBOCICLIB
     Dosage: 600 MG
     Route: 048
  9. KISQALI [Suspect]
     Active Substance: RIBOCICLIB
     Dosage: 600 MG, QD
     Route: 048
     Dates: end: 20241203
  10. FEMARA [Suspect]
     Active Substance: LETROZOLE
     Indication: Breast cancer
     Dosage: UNK (TABLET)
     Route: 048
  11. FEMARA [Suspect]
     Active Substance: LETROZOLE
     Dosage: 2.5 MG, QD
     Route: 065
     Dates: start: 20191119
  12. FEMARA [Suspect]
     Active Substance: LETROZOLE
     Dosage: 1 DOSAGE FORM, QD
     Route: 048
     Dates: start: 20231110
  13. FEMARA [Suspect]
     Active Substance: LETROZOLE
     Dosage: 1 DOSAGE FORM, QD (STARTED 5 YEARS AGO)
     Route: 048
  14. FEMARA [Suspect]
     Active Substance: LETROZOLE
     Dosage: 1 DOSAGE FORM, EVERY 24 HOURS
     Route: 048
  15. FEMARA [Suspect]
     Active Substance: LETROZOLE
     Dosage: 2.5 MG, QD
     Route: 048

REACTIONS (14)
  - Platelet count increased [Recovered/Resolved]
  - Leukopenia [Recovered/Resolved]
  - Leukopenia [Recovered/Resolved]
  - Ill-defined disorder [Recovered/Resolved]
  - Illness [Unknown]
  - Asthenia [Recovered/Resolved]
  - Vomiting [Recovered/Resolved]
  - Haemoglobin decreased [Recovered/Resolved]
  - Haemoglobin increased [Recovered/Resolved]
  - Platelet count decreased [Recovered/Resolved]
  - Decreased appetite [Recovered/Resolved]
  - White blood cell count decreased [Recovered/Resolved]
  - Weight increased [Recovered/Resolved]
  - Off label use [Unknown]
